FAERS Safety Report 4339795-4 (Version None)
Quarter: 2004Q2

REPORT INFORMATION
  Report Type: 
  Country: None (occurrence: None)
  Receive Date: 20040416
  Receipt Date: 20040120
  Transmission Date: 20050107
  Serious: Yes (Hospitalization)
  Sender: FDA-Public Use
  Company Number: 200410135JP

PATIENT
  Age: 66 Year
  Sex: Female
  Weight: 49 kg

DRUGS (10)
  1. ARAVA [Suspect]
     Indication: RHEUMATOID ARTHRITIS
     Route: 048
     Dates: start: 20030920, end: 20040121
  2. MOBIC [Concomitant]
     Route: 048
     Dates: start: 20011221
  3. PREDONINE [Concomitant]
     Route: 048
     Dates: start: 20030815, end: 20031016
  4. ADALAT [Concomitant]
     Route: 048
  5. NU-LOTAN [Concomitant]
     Route: 048
  6. MEVALOTIN [Concomitant]
  7. BASEN [Concomitant]
     Route: 048
  8. ZANTAC [Concomitant]
     Route: 048
  9. CYTOTEC [Concomitant]
     Route: 048
  10. LASIX [Concomitant]
     Route: 048
     Dates: start: 20040117

REACTIONS (13)
  - BLOOD ALBUMIN DECREASED [None]
  - BLOOD ALKALINE PHOSPHATASE INCREASED [None]
  - BLOOD CHLORIDE INCREASED [None]
  - BLOOD CREATININE INCREASED [None]
  - BLOOD POTASSIUM INCREASED [None]
  - BLOOD UREA INCREASED [None]
  - GAMMA-GLUTAMYLTRANSFERASE INCREASED [None]
  - HAEMOGLOBIN DECREASED [None]
  - OCCULT BLOOD [None]
  - PLATELET COUNT DECREASED [None]
  - PLEURAL EFFUSION [None]
  - PROTEIN URINE PRESENT [None]
  - WHITE BLOOD CELL COUNT DECREASED [None]
